FAERS Safety Report 9933094 (Version 1)
Quarter: 2014Q1

REPORT INFORMATION
  Report Type: Spontaneous
  Country: US (occurrence: US)
  Receive Date: 20140228
  Receipt Date: 20140228
  Transmission Date: 20141002
  Serious: No
  Sender: FDA-Public Use
  Company Number: US-GLAXOSMITHKLINE-A1048871A

PATIENT
  Sex: Female

DRUGS (8)
  1. LAMICTAL [Suspect]
     Indication: PARAESTHESIA
     Dosage: 100MG TWICE PER DAY
     Route: 048
     Dates: start: 20130911
  2. PRAVASTATIN [Concomitant]
  3. MONTELUKAST [Concomitant]
  4. LEVOTHYROXINE [Concomitant]
  5. ADVAIR [Concomitant]
  6. VITAMIN B [Concomitant]
  7. VITAMIN C [Concomitant]
  8. VITAMINS [Concomitant]

REACTIONS (4)
  - Pruritus [Recovering/Resolving]
  - Off label use [Unknown]
  - Drug administration error [Unknown]
  - Panic attack [Unknown]
